FAERS Safety Report 9741073 (Version 4)
Quarter: 2014Q1

REPORT INFORMATION
  Report Type: Report from Study
  Country: JP (occurrence: JP)
  Receive Date: 20131209
  Receipt Date: 20140324
  Transmission Date: 20141002
  Serious: Yes (Death, Life-Threatening, Other)
  Sender: FDA-Public Use
  Company Number: JP-SA-THYM-1003886

PATIENT
  Age: 75 Year
  Sex: Female
  Weight: 58 kg

DRUGS (15)
  1. THYMOGLOBULINE [Suspect]
     Indication: APLASTIC ANAEMIA
     Dosage: 225 MG, QD OVER 12 HOURS
     Route: 042
     Dates: start: 20121129, end: 20121203
  2. THYMOGLOBULINE [Suspect]
     Indication: APLASTIC ANAEMIA
     Dosage: 215 MG, QD
     Route: 042
     Dates: start: 20130508, end: 20130512
  3. SANDIMMUN [Suspect]
     Indication: APLASTIC ANAEMIA
     Route: 048
     Dates: start: 20130326, end: 20130613
  4. SANDIMMUN [Suspect]
     Indication: APLASTIC ANAEMIA
     Dosage: 115 MG, BID
     Route: 048
     Dates: start: 20121129
  5. BAKTAR [Concomitant]
     Indication: INFECTION PROPHYLAXIS
     Dosage: UNK
     Route: 048
     Dates: start: 20130419, end: 20130613
  6. PRIMOBOLAN [Concomitant]
     Indication: APLASTIC ANAEMIA
     Dosage: 5 MG, TID
     Route: 048
     Dates: start: 20130220, end: 20130613
  7. DEFERASIROX [Concomitant]
     Indication: HYPERAEMIA
     Dosage: 500 MG, QD
     Route: 048
     Dates: start: 20130227, end: 20130613
  8. DEFERASIROX [Concomitant]
     Indication: BLOOD IRON INCREASED
     Dosage: 500 MG, QD
     Route: 048
     Dates: start: 20130227, end: 20130613
  9. CRAVIT [Concomitant]
     Indication: INFECTION PROPHYLAXIS
     Dosage: 500 MG, QD
     Route: 048
     Dates: start: 20130326, end: 20130514
  10. GRAN [Concomitant]
     Indication: PANCYTOPENIA
     Dosage: 150 MCG, UNK
     Route: 059
     Dates: start: 20130510, end: 20130525
  11. GRAN [Concomitant]
     Indication: NEUTROPENIA
     Dosage: 150 MCG, UNK
     Route: 059
     Dates: start: 20130510, end: 20130525
  12. ACICLOVIR [Concomitant]
     Indication: HERPES SIMPLEX
     Dosage: UNK
     Dates: start: 20130521, end: 20130527
  13. ACICLOVIR [Concomitant]
     Indication: HERPES ZOSTER
     Dosage: UNK
     Dates: start: 20130521, end: 20130527
  14. ALLELOCK [Concomitant]
     Indication: RHINITIS ALLERGIC
     Dosage: 5 MG, BID
     Route: 048
     Dates: start: 20130418, end: 20130613
  15. PARIET [Concomitant]
     Indication: GASTROOESOPHAGEAL REFLUX DISEASE
     Dosage: 10 MG, QD
     Route: 048
     Dates: start: 20130326, end: 20130613

REACTIONS (2)
  - Post transplant lymphoproliferative disorder [Fatal]
  - Blood culture positive [Unknown]
